FAERS Safety Report 24684864 (Version 1)
Quarter: 2024Q4

REPORT INFORMATION
  Report Type: Spontaneous
  Country: ES (occurrence: ES)
  Receive Date: 20241202
  Receipt Date: 20241202
  Transmission Date: 20250115
  Serious: Yes (Hospitalization)
  Sender: ABBVIE
  Company Number: None

PATIENT
  Age: 61 Year
  Sex: Male

DRUGS (3)
  1. CEFTAROLINE FOSAMIL [Suspect]
     Active Substance: CEFTAROLINE FOSAMIL
     Indication: Endocarditis
     Dosage: TIME INTERVAL: 0.33333333 DAYS: 600 MG, 3X/DAY
     Route: 042
     Dates: start: 20240816, end: 20240923
  2. ENOXAPARIN SODIUM [Concomitant]
     Active Substance: ENOXAPARIN SODIUM
     Indication: Endocarditis
     Dosage: UNK
     Route: 058
     Dates: start: 20240817, end: 20240927
  3. DAPTOMYCIN [Suspect]
     Active Substance: DAPTOMYCIN
     Indication: Endocarditis
     Dosage: TIME INTERVAL: 0.33333333 DAYS: 800 MG, 3X/DAY
     Route: 042
     Dates: start: 20240816, end: 20240912

REACTIONS (2)
  - Drug reaction with eosinophilia and systemic symptoms [Recovered/Resolved]
  - Off label use [Unknown]

NARRATIVE: CASE EVENT DATE: 20240816
